FAERS Safety Report 4776813-3 (Version None)
Quarter: 2005Q3

REPORT INFORMATION
  Report Type: 
  Country: None (occurrence: None)
  Receive Date: 20050923
  Receipt Date: 20050916
  Transmission Date: 20060218
  Serious: Yes (Other)
  Sender: FDA-Public Use
  Company Number: PHEH2005US10327

PATIENT
  Age: 51 Year
  Sex: Female

DRUGS (2)
  1. ZELNORM [Suspect]
     Indication: CONSTIPATION
     Dosage: 6 MG, BID
     Route: 048
     Dates: start: 20050913, end: 20050916
  2. PROTONIX [Concomitant]
     Dosage: 40 MG, UNK
     Dates: start: 20050801

REACTIONS (1)
  - RECTAL HAEMORRHAGE [None]
